FAERS Safety Report 4965963-4 (Version None)
Quarter: 2006Q2

REPORT INFORMATION
  Report Type: 
  Country: None (occurrence: None)
  Receive Date: 20060407
  Receipt Date: 20060327
  Transmission Date: 20061013
  Serious: Yes (Death, Hospitalization)
  Sender: FDA-Public Use
  Company Number: CN-BRISTOL-MYERS SQUIBB COMPANY-13328299

PATIENT
  Age: 82 Year
  Sex: Male

DRUGS (2)
  1. MAXIPIME [Suspect]
     Indication: LUNG INFECTION
     Dosage: DOASE: 2.0/100ML TWICE DAILY
     Route: 042
     Dates: start: 20060301, end: 20060304
  2. MAXIPIME [Suspect]
     Indication: THERMAL BURN
     Dosage: DOASE: 2.0/100ML TWICE DAILY
     Route: 042
     Dates: start: 20060301, end: 20060304

REACTIONS (4)
  - HYPERKALAEMIA [None]
  - RENAL FAILURE [None]
  - RESPIRATORY FAILURE [None]
  - SHOCK [None]
